FAERS Safety Report 7963099-1 (Version None)
Quarter: 2011Q4

REPORT INFORMATION
  Report Type: 
  Country: None (occurrence: None)
  Receive Date: 20111207
  Receipt Date: 20111017
  Transmission Date: 20120403
  Serious: Yes (Hospitalization)
  Sender: FDA-Public Use
  Company Number: US-ROCHE-1002368

PATIENT
  Sex: Female
  Weight: 49.94 kg

DRUGS (1)
  1. ZELBORAF [Suspect]
     Indication: MALIGNANT MELANOMA
     Route: 048
     Dates: start: 20110831, end: 20110919

REACTIONS (1)
  - HEMIPLEGIA [None]
